FAERS Safety Report 8759191 (Version 2)
Quarter: 2013Q1

REPORT INFORMATION
  Report Type: Report from Study
  Country: DE (occurrence: DE)
  Receive Date: 20120829
  Receipt Date: 20130213
  Transmission Date: 20140127
  Serious: Yes (Death)
  Sender: FDA-Public Use
  Company Number: DE-UCBSA-064303

PATIENT
  Age: 81 Year
  Sex: Female
  Weight: 79 kg

DRUGS (9)
  1. NEUPRO [Suspect]
     Indication: PARKINSON^S DISEASE
     Route: 062
     Dates: start: 20110729, end: 20120814
  2. NEUPRO [Suspect]
     Indication: PARKINSON^S DISEASE
     Route: 062
     Dates: start: 20110214, end: 20110706
  3. NEUPRO [Suspect]
     Indication: PARKINSON^S DISEASE
     Route: 062
     Dates: start: 20101203, end: 201101
  4. NEUPRO [Suspect]
     Indication: PARKINSON^S DISEASE
     Route: 062
     Dates: start: 20101125, end: 20101202
  5. LEVOCOMP [Concomitant]
     Indication: PARKINSON^S DISEASE
     Dosage: 100/25 MG, OTHER 1-1/2-1/2
     Dates: start: 20091213, end: 20120814
  6. AMITRIPTILIN RET [Concomitant]
     Indication: DEPRESSION
     Dates: end: 20120814
  7. OXAZEPAM [Concomitant]
     Indication: DEPRESSION
     Dates: end: 20120814
  8. MELLERIL RET [Concomitant]
     Indication: DEPRESSION
     Dates: end: 20120814
  9. L-THYROXIN [Concomitant]
     Indication: HYPOTHYROIDISM
     Dates: end: 20120814

REACTIONS (1)
  - Death [Fatal]
